FAERS Safety Report 24197453 (Version 1)
Quarter: 2024Q3

REPORT INFORMATION
  Report Type: Spontaneous
  Country: ES (occurrence: ES)
  Receive Date: 20240811
  Receipt Date: 20240811
  Transmission Date: 20241016
  Serious: Yes (Other)
  Sender: TEVA
  Company Number: None

PATIENT
  Age: 68 Year
  Sex: Female

DRUGS (6)
  1. CIPROFLOXACIN [Suspect]
     Active Substance: CIPROFLOXACIN
     Indication: Urinary tract infection
     Dosage: CIPROFLOXACINO (2049A)
     Route: 048
     Dates: start: 20240611, end: 20240618
  2. GEMFIBROZIL [Concomitant]
     Active Substance: GEMFIBROZIL
     Indication: Product used for unknown indication
     Dosage: GEMFIBROZIL STADA ,EFG TABLETS, 30 TABLETS, GEMFIBROZIL STADA
     Route: 048
     Dates: start: 20170329
  3. ENALAPRIL [Concomitant]
     Active Substance: ENALAPRIL
     Indication: Product used for unknown indication
     Dosage: ENALAPRIL TEVA-RATIOPHARM TABLETS, 60 TABLETS
     Route: 048
     Dates: start: 20200330
  4. LORAZEPAM [Concomitant]
     Active Substance: LORAZEPAM
     Indication: Product used for unknown indication
     Dosage: LORAZEPAM PENSA,EFG TABLETS, 50 TABLETS
     Route: 048
     Dates: start: 20200302
  5. PREMAX [Concomitant]
     Indication: Product used for unknown indication
     Dosage: EFG TABLETS, 56 TABLETS
     Route: 048
     Dates: start: 20240611
  6. HYDROCHLOROTHIAZIDE [Concomitant]
     Active Substance: HYDROCHLOROTHIAZIDE
     Indication: Product used for unknown indication
     Dosage: HYDROCHLOROTHIAZIDE KERN PHARMA , 20 TABLETS
     Route: 048
     Dates: start: 20200402

REACTIONS (1)
  - Tendon rupture [Unknown]

NARRATIVE: CASE EVENT DATE: 20240715
